FAERS Safety Report 9764808 (Version 1)
Quarter: 2013Q4

REPORT INFORMATION
  Report Type: Spontaneous
  Country: US (occurrence: US)
  Receive Date: 20131217
  Receipt Date: 20131217
  Transmission Date: 20140711
  Serious: No
  Sender: FDA-Public Use
  Company Number: US-BIOGENIDEC-2013BI110322

PATIENT
  Age: 28 Year
  Sex: Female

DRUGS (12)
  1. TECFIDERA [Suspect]
     Indication: MULTIPLE SCLEROSIS
     Dates: start: 201309, end: 201310
  2. AMPYRA [Concomitant]
     Indication: MULTIPLE SCLEROSIS
     Dates: start: 20120814
  3. ASPIRIN [Concomitant]
     Route: 048
  4. BAYER ASPIRIN [Concomitant]
  5. CELEBREX [Concomitant]
     Route: 048
  6. FEXOFENADINE [Concomitant]
     Route: 048
  7. MECLIZINE HCL [Concomitant]
     Route: 048
  8. OMEGA 3-6-9 [Concomitant]
     Route: 048
  9. POLYETHYLENE GLYCOL [Concomitant]
     Route: 048
  10. PRENATAL VITAMINS [Concomitant]
     Route: 048
  11. TRUBIOTICS [Concomitant]
  12. VITAMIN D3 [Concomitant]

REACTIONS (6)
  - Memory impairment [Unknown]
  - Asthenia [Unknown]
  - Micturition urgency [Unknown]
  - Gait disturbance [Unknown]
  - Mood swings [Unknown]
  - Multiple sclerosis [Unknown]
